FAERS Safety Report 21815852 (Version 2)
Quarter: 2023Q1

REPORT INFORMATION
  Report Type: Spontaneous
  Country: QA (occurrence: QA)
  Receive Date: 20230104
  Receipt Date: 20230314
  Transmission Date: 20230418
  Serious: Yes (Hospitalization)
  Sender: FDA-Public Use
  Company Number: QA-002147023-NVSC2022QA300623

PATIENT
  Age: 19 Year
  Sex: Female

DRUGS (4)
  1. CRIZANLIZUMAB [Suspect]
     Active Substance: CRIZANLIZUMAB
     Indication: Sickle cell anaemia with crisis
     Dosage: 5 MG/KG, LOADING DOSE
     Route: 065
     Dates: start: 20210329, end: 20210329
  2. CRIZANLIZUMAB [Suspect]
     Active Substance: CRIZANLIZUMAB
     Dosage: 5 MG/KG, AFTER 2 WEEKS
     Route: 065
  3. CRIZANLIZUMAB [Suspect]
     Active Substance: CRIZANLIZUMAB
     Dosage: 5 MG/KG, QMO
     Route: 065
  4. HYDROXYUREA [Suspect]
     Active Substance: HYDROXYUREA
     Indication: Sickle cell anaemia with crisis
     Dosage: 1500 MG, QD
     Route: 065

REACTIONS (3)
  - Pain in extremity [Unknown]
  - Back pain [Unknown]
  - Infusion related reaction [Unknown]
